FAERS Safety Report 16670303 (Version 1)
Quarter: 2019Q3

REPORT INFORMATION
  Report Type: Spontaneous
  Country: US (occurrence: US)
  Receive Date: 20190805
  Receipt Date: 20190805
  Transmission Date: 20191004
  Serious: No
  Sender: FDA-Public Use
  Company Number: US-ACTELION-A-US2019-193471

PATIENT
  Sex: Female

DRUGS (1)
  1. OPSUMIT [Suspect]
     Active Substance: MACITENTAN
     Indication: PRODUCT USED FOR UNKNOWN INDICATION
     Route: 048

REACTIONS (9)
  - Tachycardia [Unknown]
  - Heart rate irregular [Unknown]
  - Hypertension [Unknown]
  - Loss of consciousness [Unknown]
  - Fall [Unknown]
  - Injury [Unknown]
  - Brain natriuretic peptide increased [Unknown]
  - Cardiomegaly [Unknown]
  - Migraine [Unknown]
